FAERS Safety Report 12392900 (Version 2)
Quarter: 2016Q2

REPORT INFORMATION
  Report Type: Spontaneous
  Country: US (occurrence: US)
  Receive Date: 20160523
  Receipt Date: 20160527
  Transmission Date: 20160815
  Serious: Yes (Other)
  Sender: FDA-Public Use
  Company Number: US-ACCORD-030228

PATIENT
  Age: 48 Year
  Sex: Male

DRUGS (6)
  1. PALONOSETRON/PALONOSETRON HYDROCHLORIDE [Concomitant]
     Indication: NAUSEA
     Route: 042
  2. BEVACIZUMAB [Concomitant]
     Active Substance: BEVACIZUMAB
     Indication: COLORECTAL CANCER METASTATIC
     Dates: start: 201402
  3. FLUOROURACIL. [Suspect]
     Active Substance: FLUOROURACIL
     Indication: COLORECTAL CANCER METASTATIC
     Dosage: FOLFIRI, 2.4 GM/M^2 IN FIRST CYCLE AND DOSE REDUCED IN SECOND CYCLE
     Route: 041
     Dates: start: 201402
  4. FOLINIC ACID [Concomitant]
     Active Substance: LEUCOVORIN
     Indication: COLORECTAL CANCER METASTATIC
     Dates: start: 201402
  5. IRINOTECAN [Concomitant]
     Active Substance: IRINOTECAN
     Indication: COLORECTAL CANCER METASTATIC
     Dates: start: 201402
  6. DENOSUMAB [Concomitant]
     Active Substance: DENOSUMAB
     Route: 058

REACTIONS (2)
  - Cardiotoxicity [Recovered/Resolved]
  - Chest pain [Recovered/Resolved]
